FAERS Safety Report 8484970 (Version 6)
Quarter: 2013Q4

REPORT INFORMATION
  Report Type: Spontaneous
  Country: US (occurrence: US)
  Receive Date: 20120330
  Receipt Date: 20131125
  Transmission Date: 20140711
  Serious: Yes (Other)
  Sender: FDA-Public Use
  Company Number: US-PFIZER INC-2012077267

PATIENT
  Age: 60 Year
  Sex: Male
  Weight: 102.49 kg

DRUGS (7)
  1. CADUET [Suspect]
     Indication: HYPERTENSION
     Dosage: 10/20MG DAILY
     Route: 048
     Dates: start: 200508
  2. CADUET [Suspect]
     Indication: BLOOD CHOLESTEROL INCREASED
  3. CADUET [Suspect]
     Indication: CARDIAC DISORDER
  4. INSULIN [Concomitant]
     Indication: DIABETES MELLITUS
     Dosage: 4 SHOTS DAILY
  5. KLONOPIN [Concomitant]
     Indication: ANXIETY
     Dosage: 1 MG, 3X/DAY
  6. LANTUS [Concomitant]
     Indication: DIABETES MELLITUS
     Dosage: 26 IU DAILY AT BED TIME
  7. NOVOLOG [Concomitant]
     Indication: DIABETES MELLITUS
     Dosage: 10MG MORNING AND 10MG IN LUNCH AND 15MGIN SUPPER ,3XDAY

REACTIONS (3)
  - Pneumonia [Recovering/Resolving]
  - Back injury [Unknown]
  - Pain [Unknown]
